FAERS Safety Report 7251495-X (Version None)
Quarter: 2011Q1

REPORT INFORMATION
  Report Type: 
  Country: None (occurrence: None)
  Receive Date: 20110128
  Receipt Date: 20110128
  Transmission Date: 20110831
  Serious: Yes (Other)
  Sender: FDA-Public Use
  Company Number: PHHO2009EG11959

PATIENT
  Sex: Male
  Weight: 92 kg

DRUGS (1)
  1. FTY [Suspect]
     Indication: MULTIPLE SCLEROSIS
     Dosage: UNK
     Route: 048
     Dates: start: 20070913

REACTIONS (5)
  - BLOOD GLUCOSE INCREASED [None]
  - POLYDIPSIA [None]
  - FATIGUE [None]
  - DIABETES MELLITUS [None]
  - POLYURIA [None]
